FAERS Safety Report 9697178 (Version 1)
Quarter: 2013Q4

REPORT INFORMATION
  Report Type: Spontaneous
  Country: US (occurrence: US)
  Receive Date: 20131120
  Receipt Date: 20131120
  Transmission Date: 20140711
  Serious: No
  Sender: FDA-Public Use
  Company Number: US-BIOGENIDEC-2013BI110963

PATIENT
  Age: 62 Year
  Sex: Female

DRUGS (4)
  1. TYSABRI [Suspect]
     Indication: MULTIPLE SCLEROSIS
     Route: 042
     Dates: start: 20131105
  2. COPAXONE [Concomitant]
     Indication: MULTIPLE SCLEROSIS
  3. METAMUCIL [Concomitant]
     Indication: THERAPEUTIC PROCEDURE
     Dates: start: 2013
  4. PROZAC [Concomitant]
     Indication: DEPRESSION

REACTIONS (3)
  - Sensation of blood flow [Unknown]
  - Paraesthesia [Unknown]
  - Rash [Unknown]
